FAERS Safety Report 18196458 (Version 1)
Quarter: 2020Q3

REPORT INFORMATION
  Report Type: Spontaneous
  Country: US (occurrence: US)
  Receive Date: 20200825
  Receipt Date: 20200825
  Transmission Date: 20201103
  Serious: No
  Sender: FDA-Public Use
  Company Number: None

PATIENT
  Age: 71 Year
  Sex: Male

DRUGS (16)
  1. CABOMETYX [Suspect]
     Active Substance: CABOZANTINIB S-MALATE
     Indication: RENAL CELL CARCINOMA
     Route: 048
     Dates: start: 20200302, end: 20200612
  2. GLIMEPIRIDE 1MG [Concomitant]
     Active Substance: GLIMEPIRIDE
  3. LEVOTHYROXINE 0.025MG [Concomitant]
  4. AMIODARONE 200MG [Concomitant]
     Active Substance: AMIODARONE
  5. GABAPENTIN 600MG [Concomitant]
     Active Substance: GABAPENTIN
  6. CLONIDINE 0.1MG [Concomitant]
     Active Substance: CLONIDINE
  7. FUROSEMIDE 20MG [Concomitant]
     Active Substance: FUROSEMIDE
  8. CLOPIDOGREL [Concomitant]
     Active Substance: CLOPIDOGREL BISULFATE
  9. METOPROLOL TARTRATE 25MG [Concomitant]
     Active Substance: METOPROLOL TARTRATE
  10. RANITIDINE. [Concomitant]
     Active Substance: RANITIDINE
  11. MULTI?VITAMIN [Concomitant]
     Active Substance: .ALPHA.-TOCOPHEROL ACETATE, DL-\ASCORBIC ACID\CYANOCOBALAMIN\FLUORIDE ION\FOLIC ACID\NIACIN\PYRIDOXINE\RIBOFLAVIN\THIAMINE\VITAMIN A\VITAMIN D
  12. ALLOPURINOL 100MG [Concomitant]
     Active Substance: ALLOPURINOL
  13. SIMVASTATIN 20MG [Concomitant]
     Active Substance: SIMVASTATIN
  14. ZINC 50MG [Concomitant]
  15. AMLODIPINE BESYLATE 10MG [Concomitant]
     Active Substance: AMLODIPINE BESYLATE
  16. INTEGRA PLUS [Concomitant]
     Active Substance: ASCORBIC ACID\BIOTIN\CALCIUM PANTOTHENATE\FERROUS ASPARTO GLYCINATE\FERROUS FUMARATE\FOLIC ACID\NIACIN\PYRIDOXINE HYDROCHLORIDE\RIBOFLAVIN\THIAMINE MONONITRATE

REACTIONS (1)
  - Abdominal discomfort [None]

NARRATIVE: CASE EVENT DATE: 20200825
